FAERS Safety Report 16577002 (Version 1)
Quarter: 2019Q3

REPORT INFORMATION
  Report Type: Spontaneous
  Country: US (occurrence: US)
  Receive Date: 20190715
  Receipt Date: 20190715
  Transmission Date: 20191004
  Serious: Yes (Death)
  Sender: FDA-Public Use
  Company Number: None

PATIENT
  Age: 65 Year
  Sex: Female

DRUGS (7)
  1. ENBREL [Suspect]
     Active Substance: ETANERCEPT
     Indication: PSORIATIC ARTHROPATHY
     Dosage: ?          OTHER FREQUENCY:EVERY WEEK;?
     Route: 058
     Dates: start: 20190316, end: 20190619
  2. LOSARTAN. [Concomitant]
     Active Substance: LOSARTAN
  3. FOLIC ACID. [Concomitant]
     Active Substance: FOLIC ACID
  4. TORSEMIDE. [Concomitant]
     Active Substance: TORSEMIDE
  5. BETAMETH [Concomitant]
  6. DOXEPIN [Concomitant]
     Active Substance: DOXEPIN
  7. HYDROXYZINE [Concomitant]
     Active Substance: HYDROXYZINE HYDROCHLORIDE

REACTIONS (1)
  - Death [None]

NARRATIVE: CASE EVENT DATE: 20190713
